FAERS Safety Report 18034364 (Version 4)
Quarter: 2021Q1

REPORT INFORMATION
  Report Type: Spontaneous
  Country: DE (occurrence: DE)
  Receive Date: 20200716
  Receipt Date: 20210319
  Transmission Date: 20210419
  Serious: Yes (Hospitalization, Other)
  Sender: FDA-Public Use
  Company Number: DE-SA-2020SA181508

PATIENT
  Age: 15 Year
  Sex: Male

DRUGS (9)
  1. ELOCTA [Suspect]
     Active Substance: EFMOROCTOCOG ALFA
     Dosage: 3000 IU, QD
     Route: 042
     Dates: start: 2020, end: 2020
  2. ELOCTA [Suspect]
     Active Substance: EFMOROCTOCOG ALFA
     Dosage: 3000 IU, BID
     Route: 042
     Dates: start: 2020, end: 2020
  3. ELOCTA [Suspect]
     Active Substance: EFMOROCTOCOG ALFA
     Dosage: 3000 IU, QD
     Route: 042
     Dates: start: 2020, end: 2020
  4. ELOCTA [Suspect]
     Active Substance: EFMOROCTOCOG ALFA
     Indication: FACTOR VIII DEFICIENCY
     Dosage: 3000 IU, BIW (50 IU/KG)
     Route: 042
     Dates: start: 20190729, end: 2020
  5. ELOCTA [Suspect]
     Active Substance: EFMOROCTOCOG ALFA
     Dosage: 60 IU/KG
     Route: 042
     Dates: start: 2020, end: 2020
  6. ELOCTA [Suspect]
     Active Substance: EFMOROCTOCOG ALFA
     Dosage: 60 IU/KG
     Route: 042
     Dates: start: 2020, end: 2020
  7. ELOCTA [Suspect]
     Active Substance: EFMOROCTOCOG ALFA
     Dosage: 3000 IU, BID
     Route: 042
     Dates: start: 2020, end: 2020
  8. EMICIZUMAB. [Concomitant]
     Active Substance: EMICIZUMAB
  9. ELOCTA [Suspect]
     Active Substance: EFMOROCTOCOG ALFA
     Indication: FACTOR VIII DEFICIENCY
     Dosage: 3000 IU, BIW (50 IU/KG)
     Route: 042
     Dates: start: 20190729, end: 2020

REACTIONS (6)
  - Compartment syndrome [Recovered/Resolved]
  - Injection site swelling [Recovered/Resolved]
  - Skin reaction [Recovered/Resolved]
  - Factor VIII inhibition [Not Recovered/Not Resolved]
  - Soft tissue haemorrhage [Unknown]
  - Muscle haemorrhage [Recovered/Resolved]

NARRATIVE: CASE EVENT DATE: 2020
